FAERS Safety Report 15022487 (Version 2)
Quarter: 2018Q2

REPORT INFORMATION
  Report Type: Spontaneous
  Country: JP (occurrence: JP)
  Receive Date: 20180618
  Receipt Date: 20180628
  Transmission Date: 20180711
  Serious: Yes (Other)
  Sender: FDA-Public Use
  Company Number: JP-PFIZER INC-2018213976

PATIENT
  Age: 45 Year
  Sex: Female
  Weight: 47 kg

DRUGS (8)
  1. DEPAS [Concomitant]
     Active Substance: ETIZOLAM
     Indication: DEPRESSION
     Dosage: UNK
     Route: 065
  2. HIRNAMIN /00038601/ [Concomitant]
     Active Substance: LEVOMEPROMAZINE
     Indication: DEPRESSION
     Dosage: UNK
     Route: 065
  3. ADETPHOS [Concomitant]
     Active Substance: ADENOSINE TRIPHOSPHATE
     Indication: MENIERE^S DISEASE
     Dosage: 1 G, 3X/DAY
     Route: 048
     Dates: start: 20170525
  4. MERISLON [Concomitant]
     Active Substance: BETAHISTINE MESILATE
     Indication: MENIERE^S DISEASE
     Dosage: 6 MG, 3X/DAY
     Route: 048
     Dates: start: 20170525
  5. METHYCOBAL [Concomitant]
     Active Substance: METHYLCOBALAMIN
     Dosage: UNK
     Route: 065
  6. GOREISAN /08015901/ [Concomitant]
     Active Substance: HERBALS
     Indication: MENIERE^S DISEASE
     Dosage: 2.5 G, 3X/DAY
     Route: 048
     Dates: start: 20170629
  7. MEILAX [Concomitant]
     Active Substance: ETHYL LOFLAZEPATE
     Indication: DEPRESSION
     Dosage: UNK
     Route: 065
  8. CELECOX [Suspect]
     Active Substance: CELECOXIB
     Dosage: UNK
     Route: 048

REACTIONS (3)
  - Gastrointestinal mucosal disorder [Unknown]
  - Urticaria [Unknown]
  - Food allergy [Unknown]
